FAERS Safety Report 4648331-4 (Version None)
Quarter: 2005Q2

REPORT INFORMATION
  Report Type: 
  Country: None (occurrence: None)
  Receive Date: 20050426
  Receipt Date: 20050426
  Transmission Date: 20051028
  Serious: No
  Sender: FDA-Public Use
  Company Number: None

PATIENT
  Age: 77 Year
  Sex: Male
  Weight: 55 kg

DRUGS (14)
  1. LEFLUNOMIDE [Suspect]
     Indication: RHEUMATOID ARTHRITIS
     Dosage: 20 MG DAILY PO
     Route: 048
     Dates: start: 20010213, end: 20050114
  2. ACETAMINOPHEN [Concomitant]
  3. DIGOXIN [Concomitant]
  4. FOSINOPRIL [Concomitant]
  5. FUROSEMIDE [Concomitant]
  6. POTASSIUM CHLORIDE [Concomitant]
  7. RANITIDINE [Concomitant]
  8. HYDROXYCHLOROQUINE SULFATE [Concomitant]
  9. SERTRALINE HCL [Concomitant]
  10. SIMVASTATIN [Concomitant]
  11. ALBUTEROL [Concomitant]
  12. IPRATROPIUM INHALERS [Concomitant]
  13. . [Concomitant]
  14. ACETAMINOPHEN [Concomitant]

REACTIONS (3)
  - ALANINE AMINOTRANSFERASE INCREASED [None]
  - ASPARTATE AMINOTRANSFERASE INCREASED [None]
  - BLOOD ALKALINE PHOSPHATASE INCREASED [None]
